FAERS Safety Report 21562088 (Version 1)
Quarter: 2022Q4

REPORT INFORMATION
  Report Type: Spontaneous
  Country: FR (occurrence: FR)
  Receive Date: 20221107
  Receipt Date: 20221107
  Transmission Date: 20230113
  Serious: Yes (Other)
  Sender: FDA-Public Use
  Company Number: None

PATIENT
  Age: 54 Year
  Sex: Female

DRUGS (2)
  1. QUETIAPINE [Suspect]
     Active Substance: QUETIAPINE
     Indication: Depression
     Dosage: 800 MILLIGRAM DAILY; 400MG LP 2CP EVENING
  2. CLOMIPRAMINE HYDROCHLORIDE [Suspect]
     Active Substance: CLOMIPRAMINE HYDROCHLORIDE
     Indication: Depression
     Dosage: 25MG FROM 03/21, 50MG FROM 06/04, 75MG FROM 12/04, 100MG FROM 08/25
     Dates: start: 20220321

REACTIONS (1)
  - Hepatic cytolysis [Not Recovered/Not Resolved]
